FAERS Safety Report 18756769 (Version 7)
Quarter: 2022Q1

REPORT INFORMATION
  Report Type: Spontaneous
  Country: US (occurrence: US)
  Receive Date: 20210119
  Receipt Date: 20220323
  Transmission Date: 20220424
  Serious: Yes (Other)
  Sender: FDA-Public Use
  Company Number: US-PFIZER INC-2020447272

PATIENT
  Age: 75 Year
  Sex: Female

DRUGS (1)
  1. IBRANCE [Suspect]
     Active Substance: PALBOCICLIB
     Indication: Breast cancer female
     Dosage: 100 MG, CYCLIC (ONE TABLET EVERYDAY FOR 21 DAYS ON 14 DAYS OFF WITH FOOD)
     Route: 048

REACTIONS (9)
  - Ligament rupture [Unknown]
  - Localised infection [Unknown]
  - Gait disturbance [Unknown]
  - Neoplasm progression [Unknown]
  - Viral infection [Unknown]
  - Pain [Unknown]
  - Back disorder [Unknown]
  - Arthropathy [Unknown]
  - Arthralgia [Unknown]
